FAERS Safety Report 9225013 (Version 1)
Quarter: 2013Q1

REPORT INFORMATION
  Report Type: Spontaneous
  Country: US (occurrence: None)
  Receive Date: 20120912
  Receipt Date: 20120912
  Transmission Date: 20140127
  Serious: No
  Sender: FDA-Public Use
  Company Number: 2012SP025192

PATIENT
  Age: 63 Year
  Sex: Male
  Weight: 75.3 kg

DRUGS (3)
  1. RIBAPAK [Suspect]
     Indication: PRODUCT USED FOR UNKNOWN INDICATION
  2. VICTRELIS [Suspect]
     Indication: HEPATITIS C
     Route: 048
     Dates: start: 20120111
  3. PEGINTRON [Suspect]
     Indication: PRODUCT USED FOR UNKNOWN INDICATION
     Dosage: 120 MCG;QW;SC
     Route: 058
     Dates: start: 20111121

REACTIONS (3)
  - Pruritus [None]
  - Rash [None]
  - Injection site reaction [None]
